FAERS Safety Report 6217767-2 (Version None)
Quarter: 2009Q2

REPORT INFORMATION
  Report Type: 
  Country: None (occurrence: None)
  Receive Date: 20090604
  Receipt Date: 20090604
  Transmission Date: 20091009
  Serious: Yes (Other)
  Sender: FDA-Public Use
  Company Number: None

PATIENT
  Age: 42 Year
  Sex: Male
  Weight: 81.6475 kg

DRUGS (6)
  1. CYMBALTA [Suspect]
     Indication: PAIN MANAGEMENT
     Dosage: 40MG ONCE DAILY PO
     Route: 048
     Dates: start: 20081101, end: 20090506
  2. CYCLOBENZAPRINE [Suspect]
     Indication: PAIN MANAGEMENT
     Dosage: 10MG 1 EVERY 6 HOURS PO
     Route: 048
     Dates: start: 20090101, end: 20090603
  3. AVINZA [Concomitant]
  4. NEURONTIN [Concomitant]
  5. TYLENOL (CAPLET) [Concomitant]
  6. OXYCODONE [Concomitant]

REACTIONS (4)
  - DRUG INTERACTION [None]
  - DRY MOUTH [None]
  - PARADOXICAL DRUG REACTION [None]
  - TREMOR [None]
